FAERS Safety Report 8824726 (Version 1)
Quarter: 2012Q4

REPORT INFORMATION
  Report Type: 
  Country: US (occurrence: US)
  Receive Date: 20121004
  Receipt Date: 20121004
  Transmission Date: 20130627
  Serious: Yes (Other)
  Sender: FDA-Public Use
  Company Number: US-PFIZER INC-2012243432

PATIENT
  Age: 66 Year
  Sex: Female
  Weight: 74.38 kg

DRUGS (10)
  1. ARTHROTEC [Suspect]
     Indication: ARTHRITIS
     Dosage: 75 mg, 2x/day
     Route: 048
  2. ARTHROTEC [Suspect]
     Indication: OSTEOPOROSIS
  3. PRILOSEC [Concomitant]
     Dosage: UNK
  4. ZOCOR [Concomitant]
     Indication: BLOOD CHOLESTEROL INCREASED
     Dosage: UNK
  5. ZANAFLEX [Concomitant]
     Dosage: 4 mg, UNK
  6. SYNTHROID [Concomitant]
     Dosage: UNK
  7. TOPROL XL [Concomitant]
     Dosage: UNK
  8. ASPIRIN [Concomitant]
     Dosage: UNK
  9. AMBIEN [Concomitant]
     Dosage: UNK
  10. LORAZEPAM [Concomitant]
     Dosage: UNK

REACTIONS (1)
  - Arthropathy [Unknown]
